FAERS Safety Report 8216242-3 (Version None)
Quarter: 2012Q1

REPORT INFORMATION
  Report Type: 
  Country: None (occurrence: None)
  Receive Date: 20120316
  Receipt Date: 20120308
  Transmission Date: 20120608
  Serious: Yes (Hospitalization)
  Sender: FDA-Public Use
  Company Number: JP-VERTEX PHARMACEUTICALS INC.-AE-2012-002729

PATIENT
  Age: 56 Year
  Sex: Male

DRUGS (9)
  1. NOVORAPID [Concomitant]
     Route: 058
  2. RIBAVIRIN [Concomitant]
     Indication: HEPATITIS C
     Route: 048
     Dates: start: 20120209, end: 20120222
  3. NORVASC [Concomitant]
     Indication: HEPATITIS C
     Route: 048
  4. AMARYL [Concomitant]
     Route: 048
  5. TELAVIC (TELAPREVIR) [Suspect]
     Indication: HEPATITIS C
     Route: 048
     Dates: start: 20120209, end: 20120222
  6. LASIX [Concomitant]
     Route: 048
  7. ALDACTONE [Concomitant]
     Route: 048
  8. PEGINTERFERON ALFA-2B [Concomitant]
     Indication: HEPATITIS C
     Dates: start: 20120209, end: 20120222
  9. LOSARTAN POTASSIUM [Concomitant]
     Route: 048

REACTIONS (2)
  - CARDIAC ARREST [None]
  - HYPERKALAEMIA [None]
